FAERS Safety Report 5068350-6 (Version None)
Quarter: 2006Q3

REPORT INFORMATION
  Report Type: 
  Country: None (occurrence: None)
  Receive Date: 20060802
  Receipt Date: 20050811
  Transmission Date: 20061208
  Serious: No
  Sender: FDA-Public Use
  Company Number: US-BRISTOL-MYERS SQUIBB COMPANY-13073788

PATIENT
  Age: 71 Year
  Sex: Male
  Weight: 64 kg

DRUGS (5)
  1. COUMADIN [Suspect]
     Indication: HEART VALVE REPLACEMENT
  2. ACIPHEX [Concomitant]
  3. LIPITOR [Concomitant]
  4. ROGAINE [Concomitant]
     Route: 061
  5. TERAZOSIN HCL [Concomitant]

REACTIONS (2)
  - HAIR GROWTH ABNORMAL [None]
  - LIBIDO INCREASED [None]
